FAERS Safety Report 4654340-1 (Version None)
Quarter: 2005Q2

REPORT INFORMATION
  Report Type: 
  Country: None (occurrence: None)
  Receive Date: 20050404
  Receipt Date: 20050110
  Transmission Date: 20051028
  Serious: No
  Sender: FDA-Public Use
  Company Number: USA041081235

PATIENT
  Age: 60 Year
  Sex: Male

DRUGS (9)
  1. CYMBALTA [Suspect]
     Indication: DEPRESSION
     Dosage: 30 MG DAY
     Dates: start: 20040914, end: 20040914
  2. OXYCONTIN [Concomitant]
  3. OXYFAST(OXYCODONE HYDROCHLORIDE) [Concomitant]
  4. OXYCODONE HCL [Concomitant]
  5. APO-METOPROLOL(METOPROLOL TARTRATE) [Concomitant]
  6. CARDURA [Concomitant]
  7. PREVACID [Concomitant]
  8. CELEBREX [Concomitant]
  9. LOPRESSOR [Concomitant]

REACTIONS (4)
  - ANXIETY [None]
  - BLOOD PRESSURE INCREASED [None]
  - SENSORY DISTURBANCE [None]
  - TACHYCARDIA [None]
